FAERS Safety Report 17861465 (Version 1)
Quarter: 2020Q2

REPORT INFORMATION
  Report Type: Spontaneous
  Country: US (occurrence: US)
  Receive Date: 20200604
  Receipt Date: 20200604
  Transmission Date: 20200714
  Serious: Yes (Other)
  Sender: FDA-Public Use
  Company Number: US-GLAXOSMITHKLINE-US2020092762

PATIENT
  Age: 55 Year
  Sex: Female

DRUGS (1)
  1. AVANDIA [Suspect]
     Active Substance: ROSIGLITAZONE MALEATE
     Indication: PRODUCT USED FOR UNKNOWN INDICATION
     Dosage: UNK, BID
     Route: 065
     Dates: start: 200009

REACTIONS (24)
  - Diverticulitis [Recovering/Resolving]
  - Oral pain [Recovering/Resolving]
  - Cataract operation [Recovering/Resolving]
  - Vision blurred [Recovering/Resolving]
  - Condition aggravated [Recovering/Resolving]
  - Pain [Recovering/Resolving]
  - Gait disturbance [Recovering/Resolving]
  - Gastrointestinal pain [Recovering/Resolving]
  - Dysstasia [Recovering/Resolving]
  - Adverse drug reaction [Recovering/Resolving]
  - Swelling [Recovering/Resolving]
  - Anal incontinence [Recovering/Resolving]
  - Nail infection [Recovering/Resolving]
  - Hypertension [Recovering/Resolving]
  - Systemic infection [Recovering/Resolving]
  - Decreased appetite [Recovering/Resolving]
  - Urinary incontinence [Recovering/Resolving]
  - Gastrointestinal obstruction [Recovering/Resolving]
  - Movement disorder [Recovering/Resolving]
  - Blindness [Recovering/Resolving]
  - Cataract [Recovering/Resolving]
  - Cardiac murmur [Recovering/Resolving]
  - Weight decreased [Recovering/Resolving]
  - Blood cholesterol increased [Recovering/Resolving]

NARRATIVE: CASE EVENT DATE: 200009
